FAERS Safety Report 17170084 (Version 1)
Quarter: 2019Q4

REPORT INFORMATION
  Report Type: Report from Study
  Country: CO (occurrence: CO)
  Receive Date: 20191218
  Receipt Date: 20191218
  Transmission Date: 20200122
  Serious: Yes (Other)
  Sender: FDA-Public Use
  Company Number: PHHY2019CO047339

PATIENT
  Age: 61 Year
  Sex: Female
  Weight: 69 kg

DRUGS (2)
  1. COSENTYX [Suspect]
     Active Substance: SECUKINUMAB
     Dosage: 300 MG, QMO
     Route: 058
     Dates: end: 201907
  2. COSENTYX [Suspect]
     Active Substance: SECUKINUMAB
     Indication: PSORIATIC ARTHROPATHY
     Dosage: 300 MG, QW
     Route: 058
     Dates: start: 20181228, end: 20190111

REACTIONS (5)
  - Chronic sinusitis [Unknown]
  - Bacterial rhinitis [Recovered/Resolved]
  - Bacterial rhinitis [Unknown]
  - Sinusitis bacterial [Recovered/Resolved]
  - Sinusitis bacterial [Unknown]

NARRATIVE: CASE EVENT DATE: 20181228
